FAERS Safety Report 21690145 (Version 1)
Quarter: 2022Q4

REPORT INFORMATION
  Report Type: Spontaneous
  Country: JP (occurrence: JP)
  Receive Date: 20221206
  Receipt Date: 20221206
  Transmission Date: 20230112
  Serious: Yes (Other)
  Sender: FDA-Public Use
  Company Number: JP-MOCHP-A20224486

PATIENT
  Sex: Female

DRUGS (4)
  1. ESCITALOPRAM OXALATE [Suspect]
     Active Substance: ESCITALOPRAM OXALATE
     Indication: Product used for unknown indication
     Dosage: UNK
     Route: 048
  2. CHLORPROMAZINE [Suspect]
     Active Substance: CHLORPROMAZINE
     Indication: Product used for unknown indication
     Dosage: UNK
     Route: 048
  3. CHLORPROMAZINE [Suspect]
     Active Substance: CHLORPROMAZINE
     Dosage: 12.5 MG, Q12H
     Route: 048
  4. BELSOMRA [Concomitant]
     Active Substance: SUVOREXANT
     Indication: Product used for unknown indication
     Route: 048

REACTIONS (19)
  - Depressed level of consciousness [Unknown]
  - Seizure [Unknown]
  - Physical deconditioning [Unknown]
  - Dehydration [Unknown]
  - Decreased appetite [Unknown]
  - Insomnia [Unknown]
  - Dyspnoea [Unknown]
  - Malaise [Unknown]
  - Hyperventilation [Unknown]
  - Balance disorder [Unknown]
  - Adjustment disorder [Unknown]
  - Visual acuity reduced [Unknown]
  - Respiratory symptom [Unknown]
  - Vomiting [Unknown]
  - Tinnitus [Unknown]
  - Musculoskeletal stiffness [Unknown]
  - Tremor [Unknown]
  - Nightmare [Unknown]
  - Dizziness [Unknown]
